FAERS Safety Report 24646856 (Version 1)
Quarter: 2024Q4

REPORT INFORMATION
  Report Type: Spontaneous
  Country: US (occurrence: None)
  Receive Date: 20241120
  Receipt Date: 20241120
  Transmission Date: 20250114
  Serious: Yes (Hospitalization)
  Sender: Public
  Company Number: None

PATIENT
  Age: 67 Year
  Sex: Female

DRUGS (8)
  1. RIBOCICLIB [Suspect]
     Active Substance: RIBOCICLIB
     Indication: Breast cancer
     Dosage: FREQUENCY : DAILY;?
     Route: 048
     Dates: start: 20241030, end: 20241112
  2. AMLODIPINE [Concomitant]
     Active Substance: AMLODIPINE BESYLATE
  3. BENZIROPINE [Concomitant]
  4. HYDROYZINE [Concomitant]
  5. LETROZOLE [Concomitant]
     Active Substance: LETROZOLE
  6. LEVOTHYROXINE [Concomitant]
     Active Substance: LEVOTHYROXINE
  7. OLANZAPNE [Concomitant]
  8. FLUPHENAZINE DECANOATE [Concomitant]
     Active Substance: FLUPHENAZINE DECANOATE

REACTIONS (11)
  - Product dose omission issue [None]
  - Pulmonary embolism [None]
  - Lung infiltration [None]
  - Pyrexia [None]
  - White blood cell count decreased [None]
  - Neutrophil count decreased [None]
  - Lymphocyte count decreased [None]
  - Tachycardia [None]
  - Hypoxia [None]
  - Troponin increased [None]
  - Blood urea increased [None]

NARRATIVE: CASE EVENT DATE: 20241112
